FAERS Safety Report 15466929 (Version 1)
Quarter: 2018Q4

REPORT INFORMATION
  Report Type: Spontaneous
  Country: CH (occurrence: CH)
  Receive Date: 20181005
  Receipt Date: 20181005
  Transmission Date: 20190204
  Serious: Yes (Other)
  Sender: FDA-Public Use
  Company Number: CH-REGENERON PHARMACEUTICALS, INC.-2018-39458

PATIENT

DRUGS (2)
  1. EYLEA [Suspect]
     Active Substance: AFLIBERCEPT
     Indication: AGE-RELATED MACULAR DEGENERATION
     Dosage: UNKNOWN DOSE AND FREQUENCY, TOTAL NUMBER OF 17 DOSES INTO THE RIGHT EYE
     Route: 031
     Dates: end: 20180709
  2. EYLEA [Suspect]
     Active Substance: AFLIBERCEPT
     Indication: CHOROIDAL NEOVASCULARISATION

REACTIONS (10)
  - Retinal haemorrhage [Recovered/Resolved]
  - Blindness unilateral [Unknown]
  - Injection site pain [Unknown]
  - Macular fibrosis [Unknown]
  - Intraocular pressure increased [Recovered/Resolved]
  - Choroidal neovascularisation [Unknown]
  - Cataract [Unknown]
  - Corneal oedema [Unknown]
  - Corneal erosion [Unknown]
  - Retinal oedema [Unknown]

NARRATIVE: CASE EVENT DATE: 20161013
